FAERS Safety Report 9233923 (Version 1)
Quarter: 2013Q2

REPORT INFORMATION
  Report Type: Spontaneous
  Country: US (occurrence: US)
  Receive Date: 20130416
  Receipt Date: 20130416
  Transmission Date: 20140414
  Serious: No
  Sender: FDA-Public Use
  Company Number: US-MYLANLABS-2012S1021252

PATIENT
  Sex: Female

DRUGS (10)
  1. TIZANIDINE HYDROCHLORIDE TABLETS [Suspect]
     Indication: MUSCLE RELAXANT THERAPY
  2. LUNESTA [Suspect]
     Indication: INSOMNIA
     Route: 048
     Dates: start: 20120907
  3. SYNTHYROID [Concomitant]
  4. TOPAMAX [Concomitant]
  5. DICLOFENAC [Concomitant]
  6. ULTRAM ER [Concomitant]
  7. SAVELLA [Concomitant]
  8. ACIPHEX [Concomitant]
  9. SKELAXIN [Concomitant]
  10. ALBUTEROL HFA [Concomitant]

REACTIONS (6)
  - Dysphonia [Not Recovered/Not Resolved]
  - Dysgeusia [Not Recovered/Not Resolved]
  - Dyspnoea [Not Recovered/Not Resolved]
  - Insomnia [Not Recovered/Not Resolved]
  - Somnolence [Not Recovered/Not Resolved]
  - Dysphagia [Not Recovered/Not Resolved]
